FAERS Safety Report 17001102 (Version 6)
Quarter: 2020Q2

REPORT INFORMATION
  Report Type: Report from Study
  Country: US (occurrence: US)
  Receive Date: 20191106
  Receipt Date: 20200608
  Transmission Date: 20200713
  Serious: Yes (Other)
  Sender: FDA-Public Use
  Company Number: US-DSJP-DSU-2019-141029

PATIENT

DRUGS (2)
  1. PEXIDARTINIB [Suspect]
     Active Substance: PEXIDARTINIB
     Indication: SYNOVITIS
     Dosage: 400 MG, BID
     Route: 048
     Dates: start: 20191015
  2. PEXIDARTINIB [Suspect]
     Active Substance: PEXIDARTINIB
     Dosage: 400MG QAM, 200MG QPM
     Route: 048
     Dates: start: 20191015

REACTIONS (9)
  - Skin discolouration [Unknown]
  - Diarrhoea [Recovered/Resolved]
  - Hair colour changes [Unknown]
  - Hepatitis A [Not Recovered/Not Resolved]
  - Aspartate aminotransferase increased [Recovered/Resolved]
  - Fatigue [Unknown]
  - Product dose omission [Unknown]
  - Head discomfort [Unknown]
  - Pain [Unknown]

NARRATIVE: CASE EVENT DATE: 2019
